FAERS Safety Report 8506142-3 (Version None)
Quarter: 2012Q3

REPORT INFORMATION
  Report Type: 
  Country: None (occurrence: None)
  Receive Date: 20120706
  Receipt Date: 20120706
  Transmission Date: 20120928
  Serious: Yes (Hospitalization)
  Sender: FDA-Public Use
  Company Number: None

PATIENT
  Age: 25 Month
  Sex: Male
  Weight: 76.3 kg

DRUGS (2)
  1. AZITHROMYCIN [Suspect]
     Indication: PNEUMONIA
     Dosage: 250 MG EVERY DAY PO
     Route: 048
     Dates: start: 20120423, end: 20120428
  2. CLINDAMYCIN [Suspect]
     Indication: CELLULITIS
     Dosage: 300 MG QID PO
     Route: 048
     Dates: start: 20120421, end: 20120512

REACTIONS (10)
  - BREATH ODOUR [None]
  - DIZZINESS [None]
  - VOMITING [None]
  - TONGUE DISCOLOURATION [None]
  - PNEUMONIA [None]
  - ORAL CANDIDIASIS [None]
  - NAUSEA [None]
  - VISUAL IMPAIRMENT [None]
  - DIARRHOEA [None]
  - ABDOMINAL PAIN [None]
